FAERS Safety Report 4363077-8 (Version None)
Quarter: 2004Q2

REPORT INFORMATION
  Report Type: 
  Country: None (occurrence: None)
  Receive Date: 20040518
  Receipt Date: 20040506
  Transmission Date: 20050107
  Serious: Yes (Death, Life-Threatening, Hospitalization)
  Sender: FDA-Public Use
  Company Number: CZ-JNJFOC-20040501185

PATIENT
  Age: 67 Year
  Sex: Female

DRUGS (5)
  1. REMICADE [Suspect]
     Indication: RHEUMATOID ARTHRITIS
     Dosage: 200 MG, 1 IN 8 WEEK, INTRAVENOUS
     Route: 042
     Dates: start: 20030716, end: 20040310
  2. METHOTREXATE [Concomitant]
  3. PREDNISONE [Concomitant]
  4. NATRII RISEDRONAS (RISEDRONATE SODIUM) [Concomitant]
  5. VITAMIN D [Concomitant]

REACTIONS (1)
  - PNEUMONIA [None]
